FAERS Safety Report 21233571 (Version 1)
Quarter: 2022Q3

REPORT INFORMATION
  Report Type: Spontaneous
  Country: AU (occurrence: AU)
  Receive Date: 20220819
  Receipt Date: 20220819
  Transmission Date: 20221027
  Serious: Yes (Other)
  Sender: FDA-Public Use
  Company Number: AU-IGSA-BIG0020040

PATIENT
  Age: 37 Year
  Sex: Female
  Weight: 112 kg

DRUGS (2)
  1. FLEBOGAMMA [Suspect]
     Active Substance: HUMAN IMMUNOGLOBULIN G
     Indication: Acute generalised exanthematous pustulosis
     Dosage: 100 MILLIGRAM, QD
     Route: 042
     Dates: start: 20220622, end: 20220622
  2. FLEBOGAMMA [Suspect]
     Active Substance: HUMAN IMMUNOGLOBULIN G
     Indication: Intentional product use issue

REACTIONS (9)
  - Blood lactic acid increased [Recovered/Resolved]
  - Peripheral swelling [Recovered/Resolved]
  - Incontinence [Recovered/Resolved]
  - Hypervolaemia [Recovered/Resolved]
  - Anaphylactic reaction [Recovered/Resolved]
  - Wheezing [Recovered/Resolved]
  - Cough [Recovered/Resolved]
  - Dyspnoea [Recovered/Resolved]
  - Tachypnoea [Recovered/Resolved]

NARRATIVE: CASE EVENT DATE: 20220622
